FAERS Safety Report 5699409-8 (Version None)
Quarter: 2008Q2

REPORT INFORMATION
  Report Type: 
  Country: None (occurrence: None)
  Receive Date: 20080404
  Receipt Date: 20080325
  Transmission Date: 20081010
  Serious: Yes (Hospitalization)
  Sender: FDA-Public Use
  Company Number: APP200800219

PATIENT
  Age: 33 Year
  Sex: Female

DRUGS (4)
  1. CEFOTETAN [Suspect]
     Indication: CAESAREAN SECTION
     Dosage: 2 GM, ONCE, INTRAVENOUS
     Route: 042
     Dates: start: 20080228, end: 20080228
  2. CEFOTETAN [Suspect]
     Indication: PROPHYLAXIS
     Dosage: 2 GM, ONCE, INTRAVENOUS
     Route: 042
     Dates: start: 20080228, end: 20080228
  3. SPINAL EPIDURAL [Concomitant]
  4. PITOCIN [Concomitant]

REACTIONS (6)
  - ANAPHYLACTIC SHOCK [None]
  - CARDIO-RESPIRATORY ARREST [None]
  - DRUG EXPOSURE DURING PREGNANCY [None]
  - HYPOTENSION [None]
  - INFUSION RELATED REACTION [None]
  - TACHYCARDIA [None]
